FAERS Safety Report 12389823 (Version 1)
Quarter: 2016Q2

REPORT INFORMATION
  Report Type: Spontaneous
  Country: US (occurrence: US)
  Receive Date: 20160520
  Receipt Date: 20160520
  Transmission Date: 20160815
  Serious: No
  Sender: FDA-Public Use
  Company Number: US-ACTELION-A-US2016-136338

PATIENT
  Age: 63 Year
  Sex: Female
  Weight: 88.44 kg

DRUGS (7)
  1. PROCARDIA [Concomitant]
     Active Substance: NIFEDIPINE
  2. WARFARIN [Concomitant]
     Active Substance: WARFARIN
  3. TYVASO [Suspect]
     Active Substance: TREPROSTINIL
     Indication: PULMONARY HYPERTENSION
     Dosage: 108 MCG, QID
     Route: 055
     Dates: start: 20130207
  4. UPTRAVI [Suspect]
     Active Substance: SELEXIPAG
     Indication: PULMONARY HYPERTENSION
     Dosage: 600 MCG, BID
     Route: 048
     Dates: start: 20160401
  5. UPTRAVI [Suspect]
     Active Substance: SELEXIPAG
     Dosage: 1200 MCG, BID
     Route: 048
  6. TRACLEER [Suspect]
     Active Substance: BOSENTAN
     Indication: PULMONARY HYPERTENSION
     Dosage: UNK
     Route: 048
  7. REVATIO [Concomitant]
     Active Substance: SILDENAFIL CITRATE

REACTIONS (9)
  - Pain in extremity [Unknown]
  - Asthenia [Unknown]
  - Insomnia [Unknown]
  - Productive cough [Unknown]
  - Cough [Unknown]
  - Flushing [Unknown]
  - Increased appetite [Unknown]
  - Pain in jaw [Unknown]
  - Dyspnoea exertional [Unknown]

NARRATIVE: CASE EVENT DATE: 201604
